FAERS Safety Report 7209190-9 (Version None)
Quarter: 2011Q1

REPORT INFORMATION
  Report Type: 
  Country: None (occurrence: None)
  Receive Date: 20110104
  Receipt Date: 20101215
  Transmission Date: 20110831
  Serious: Yes (Hospitalization, Congenital Anomaly)
  Sender: FDA-Public Use
  Company Number: A0681650A

PATIENT
  Sex: Male

DRUGS (13)
  1. ZANTAC [Concomitant]
  2. AUGMENTIN '125' [Concomitant]
     Indication: DYSURIA
  3. TERBUTALINE SULFATE [Concomitant]
  4. PAXIL [Suspect]
     Indication: PANIC ATTACK
     Dates: start: 19960101, end: 20000101
  5. VISTARIL [Concomitant]
  6. KEFLEX [Concomitant]
     Indication: DYSURIA
  7. PHENAZOPYRIDINE HCL TAB [Concomitant]
  8. PRENATAL VITAMINS [Concomitant]
  9. PERCOCET [Concomitant]
  10. XANAX [Concomitant]
  11. MACRODANTIN [Concomitant]
  12. ACETAMINOPHEN [Concomitant]
  13. TUMS [Concomitant]

REACTIONS (6)
  - CLEFT PALATE [None]
  - PATENT DUCTUS ARTERIOSUS [None]
  - VENTRICULAR SEPTAL DEFECT [None]
  - DRUG EXPOSURE DURING PREGNANCY [None]
  - ATRIAL SEPTAL DEFECT [None]
  - TRICUSPID VALVE DISEASE [None]
